FAERS Safety Report 7582238-8 (Version None)
Quarter: 2011Q2

REPORT INFORMATION
  Report Type: 
  Country: None (occurrence: None)
  Receive Date: 20110622
  Receipt Date: 20110607
  Transmission Date: 20111010
  Serious: Yes (Other)
  Sender: FDA-Public Use
  Company Number: AUR-APL-2011-02911

PATIENT
  Age: 43 Year
  Sex: Male

DRUGS (5)
  1. EMTRICITABINE (EMTIRCITABINE) [Concomitant]
  2. TENOFOVIR DISOPROXIL FUMARATE [Concomitant]
  3. PERINDOPRIL ERBUMINE [Suspect]
     Indication: HYPERTENSION
     Dates: start: 20080101, end: 20080101
  4. ANTIVIRALS (ANTIVIRALS) [Concomitant]
  5. DARUNAVIR ETHANOLATE [Suspect]
     Indication: HIV INFECTION
     Dosage: 800 MG (800 MG, 1 IN 1 D)
     Dates: start: 20070101

REACTIONS (8)
  - RENAL IMPAIRMENT [None]
  - BLOOD UREA INCREASED [None]
  - BLOOD CREATININE INCREASED [None]
  - LIPIDS INCREASED [None]
  - MIGRAINE [None]
  - BLOOD PRESSURE INADEQUATELY CONTROLLED [None]
  - DRUG LEVEL INCREASED [None]
  - DRUG INTERACTION [None]
